FAERS Safety Report 8785134 (Version 1)
Quarter: 2012Q4

REPORT INFORMATION
  Report Type: Report from Study
  Country: US (occurrence: US)
  Receive Date: 20120914
  Receipt Date: 20120914
  Transmission Date: 20130627
  Serious: Yes (Hospitalization, Other)
  Sender: FDA-Public Use
  Company Number: US-JNJFOC-20120902810

PATIENT
  Sex: Female
  Weight: 61.24 kg

DRUGS (5)
  1. REMICADE [Suspect]
     Indication: OSTEOARTHRITIS
     Dosage: loading doses
     Route: 042
     Dates: start: 201007, end: 2010
  2. REMICADE [Suspect]
     Indication: OSTEOPOROSIS
     Dosage: loading doses
     Route: 042
     Dates: start: 201007, end: 2010
  3. REMICADE [Suspect]
     Indication: RHEUMATOID ARTHRITIS
     Dosage: loading doses
     Route: 042
     Dates: start: 201007, end: 2010
  4. ALL OTHER THERAPEUTICS [Suspect]
     Indication: DIARRHOEA
     Route: 065
     Dates: start: 2010, end: 2010
  5. FLAGYL [Suspect]
     Indication: CLOSTRIDIAL INFECTION
     Route: 065
     Dates: start: 2010, end: 2010

REACTIONS (6)
  - Clostridium difficile infection [Recovered/Resolved]
  - Drug ineffective [Unknown]
  - Lumbar vertebral fracture [Recovered/Resolved]
  - Hypoaesthesia [Recovered/Resolved]
  - Adverse event [Recovered/Resolved]
  - Abasia [Unknown]
